FAERS Safety Report 12328784 (Version 1)
Quarter: 2016Q2

REPORT INFORMATION
  Report Type: Spontaneous
  Country: US (occurrence: US)
  Receive Date: 20160503
  Receipt Date: 20160503
  Transmission Date: 20160815
  Serious: No
  Sender: FDA-Public Use
  Company Number: US-BEH-2015050768

PATIENT
  Sex: Female
  Weight: 72 kg

DRUGS (22)
  1. HIZENTRA [Suspect]
     Active Substance: HUMAN IMMUNOGLOBULIN G
     Indication: IMMUNODEFICIENCY COMMON VARIABLE
     Dosage: 4 G 20 ML VIAL
     Route: 058
  2. HIZENTRA [Suspect]
     Active Substance: HUMAN IMMUNOGLOBULIN G
     Dosage: 4 G 20 ML VIAL
     Route: 058
  3. VALIUM [Concomitant]
     Active Substance: DIAZEPAM
     Dosage: 10 MG DAILY DOSE
     Route: 048
  4. NORMAL SALINE FLUSH [Concomitant]
     Active Substance: SODIUM CHLORIDE
     Dosage: 0.9% 1DOSE UD
  5. PROMETHAZINE HCL [Concomitant]
     Active Substance: PROMETHAZINE HYDROCHLORIDE
     Dosage: DAILY DOSE 100 MG 1 DOSE Q4HP
  6. BACLOFEN. [Concomitant]
     Active Substance: BACLOFEN
     Route: 048
  7. EPIPEN [Concomitant]
     Active Substance: EPINEPHRINE
     Dosage: AUTOINJECTOR 0.3 MG AS NEEDED
     Route: 030
  8. DAILY MULTIPLE VITAMINS [Concomitant]
     Route: 048
  9. MS CONTIN [Concomitant]
     Active Substance: MORPHINE SULFATE
     Dosage: DAILY DOSE 120 MG
     Route: 048
  10. TRAZODONE HYDROCHLORIDE. [Concomitant]
     Active Substance: TRAZODONE HYDROCHLORIDE
     Dosage: DAILY DOSE 200 MG
     Route: 048
  11. ZOFRAN [Concomitant]
     Active Substance: ONDANSETRON HYDROCHLORIDE
     Route: 048
  12. OXYCODONE HYDROCHLORIDE. [Concomitant]
     Active Substance: OXYCODONE HYDROCHLORIDE
     Dosage: 1 TABLET Q8-12 HP
     Route: 048
  13. DIPHENHYDRAMINE HYDROCHLORIDE. [Concomitant]
     Active Substance: DIPHENHYDRAMINE HYDROCHLORIDE
     Dosage: DAILY DOSE 100 MG
     Route: 042
  14. KEFLEX [Concomitant]
     Active Substance: CEPHALEXIN
     Dosage: 500 MG CAPSULE (DAILY DOSE 2000 MG)
     Route: 042
  15. NEURONTIN [Concomitant]
     Active Substance: GABAPENTIN
     Dosage: DAILY DOSE 2400 MG
     Route: 048
  16. METHADONE HCL [Concomitant]
     Active Substance: METHADONE HYDROCHLORIDE
     Dosage: DAILY DOSE 20 MG
     Route: 048
  17. PEPCID [Concomitant]
     Active Substance: FAMOTIDINE
     Route: 048
  18. REQUIP [Concomitant]
     Active Substance: ROPINIROLE HYDROCHLORIDE
     Route: 048
  19. PROCHLORPERAZINE. [Concomitant]
     Active Substance: PROCHLORPERAZINE
     Route: 048
  20. LIDOCAINE/PRILOCAINE [Concomitant]
     Dosage: 2.5% PRIOR TOP
  21. INDOMETHACIN. [Concomitant]
     Active Substance: INDOMETHACIN
     Dosage: DAILY DOSE 150 MG
     Route: 048
  22. SEROQUEL XR [Concomitant]
     Active Substance: QUETIAPINE FUMARATE
     Route: 048

REACTIONS (4)
  - Gastric disorder [Unknown]
  - Drug dose omission [Unknown]
  - Pain [Unknown]
  - Malaise [Unknown]
